FAERS Safety Report 11704478 (Version 20)
Quarter: 2017Q3

REPORT INFORMATION
  Report Type: Spontaneous
  Country: US (occurrence: US)
  Receive Date: 20151106
  Receipt Date: 20170721
  Transmission Date: 20171127
  Serious: Yes (Hospitalization, Other)
  Sender: FDA-Public Use
  Company Number: US-PFIZER INC-2015348189

PATIENT
  Age: 69 Year
  Sex: Female
  Weight: 57.6 kg

DRUGS (16)
  1. IBRANCE [Suspect]
     Active Substance: PALBOCICLIB
     Indication: BREAST CANCER METASTATIC
     Dosage: 125 MG, CYCLIC (21 DAYS ON AND 7 DAYS OFF OF A 28-DAY CYCLE)
     Route: 048
     Dates: start: 20150724
  2. IBRANCE [Suspect]
     Active Substance: PALBOCICLIB
     Dosage: 125 MG, CYCLIC (21 DAYS ON AND 7 DAYS OFF OF A 28-DAY CYCLE)
     Route: 048
  3. IBRANCE [Suspect]
     Active Substance: PALBOCICLIB
     Dosage: 125 MG, CYCLIC (1-21 Q28 DAYS)
     Route: 048
  4. IBRANCE [Suspect]
     Active Substance: PALBOCICLIB
     Dosage: 125 MG, CYCLIC, (D1-21 Q 28 DAYS)
     Route: 048
     Dates: start: 20150724
  5. IBRANCE [Suspect]
     Active Substance: PALBOCICLIB
     Dosage: 125 MG, CYCLIC (21 DAYS ON AND 7 DAYS OFF OF A 28-DAY CYCLE)
     Route: 048
  6. IBRANCE [Suspect]
     Active Substance: PALBOCICLIB
     Dosage: 125 MG, CYCLIC (21 DAYS ON AND 7 DAYS OFF OF A 28-DAY CYCLE)
     Route: 048
  7. IBRANCE [Suspect]
     Active Substance: PALBOCICLIB
     Dosage: 125 MG, CYCLIC (21 DAYS ON AND 7 DAYS OFF OF A 28-DAY CYCLE)
     Route: 048
  8. IBRANCE [Suspect]
     Active Substance: PALBOCICLIB
     Dosage: 125 MG, CYCLIC (21 DAYS ON AND 7 DAYS OFF OF A 28-DAY CYCLE)
     Route: 048
  9. IBRANCE [Suspect]
     Active Substance: PALBOCICLIB
     Dosage: 125 MG, CYCLIC (21 DAYS ON AND 7 DAYS OFF OF A 28-DAY CYCLE)
     Route: 048
  10. IBRANCE [Suspect]
     Active Substance: PALBOCICLIB
     Dosage: 125 MG, CYCLIC (21 DAYS ON AND 7 DAYS OFF OF A 28-DAY CYCLE)
     Route: 048
  11. IBRANCE [Suspect]
     Active Substance: PALBOCICLIB
     Dosage: 125 MG, CYCLIC (21 DAYS ON AND 7 DAYS OFF OF A 28-DAY CYCLE)
     Route: 048
  12. IBRANCE [Suspect]
     Active Substance: PALBOCICLIB
     Dosage: 125 MG, CYCLIC, (D1-D21 Q 28 DAYS)
     Route: 048
  13. LETROZOLE. [Suspect]
     Active Substance: LETROZOLE
     Indication: BREAST CANCER
     Dosage: UNK
  14. IBRANCE [Suspect]
     Active Substance: PALBOCICLIB
     Dosage: 125 MG, CYCLIC (21 DAYS ON AND 7 DAYS OFF OF A 28-DAY CYCLE)
     Route: 048
  15. IBRANCE [Suspect]
     Active Substance: PALBOCICLIB
     Dosage: 125 MG, CYCLIC (1-21 Q28 DAYS)
     Route: 048
  16. IBRANCE [Suspect]
     Active Substance: PALBOCICLIB
     Dosage: 125 MG, CYCLIC, (D1-D21 Q 28 DAYS)
     Route: 048

REACTIONS (50)
  - Oral herpes [Not Recovered/Not Resolved]
  - Sinusitis [Unknown]
  - Pain [Unknown]
  - Protein urine present [Unknown]
  - Retching [Unknown]
  - Red blood cell count decreased [Unknown]
  - Hypotension [Unknown]
  - Dyspnoea [Unknown]
  - Nausea [Unknown]
  - Back pain [Unknown]
  - Pain in extremity [Unknown]
  - Face oedema [Unknown]
  - Abdominal discomfort [Unknown]
  - Sinus congestion [Unknown]
  - Musculoskeletal pain [Unknown]
  - Fatigue [Not Recovered/Not Resolved]
  - Asthenia [Unknown]
  - Epistaxis [Recovering/Resolving]
  - Diarrhoea [Not Recovered/Not Resolved]
  - Flatulence [Unknown]
  - Lacrimation increased [Unknown]
  - Decreased appetite [Unknown]
  - Cough [Unknown]
  - Constipation [Not Recovered/Not Resolved]
  - Dry mouth [Not Recovered/Not Resolved]
  - Mouth swelling [Recovered/Resolved]
  - Drug dose omission [Unknown]
  - Rotator cuff syndrome [Unknown]
  - Urine analysis abnormal [Unknown]
  - Skin turgor decreased [Unknown]
  - Chronic obstructive pulmonary disease [Unknown]
  - Kidney infection [Unknown]
  - Muscle spasms [Unknown]
  - Blood potassium decreased [Unknown]
  - Tongue ulceration [Unknown]
  - Nasal ulcer [Unknown]
  - Blood glucose decreased [Unknown]
  - Pyrexia [Unknown]
  - Stomatitis [Not Recovered/Not Resolved]
  - Oral pain [Not Recovered/Not Resolved]
  - Urine odour abnormal [Unknown]
  - Bronchitis [Unknown]
  - Condition aggravated [Not Recovered/Not Resolved]
  - Bone pain [Unknown]
  - Gait disturbance [Unknown]
  - Weight decreased [Unknown]
  - Groin pain [Unknown]
  - Vomiting [Unknown]
  - Dehydration [Unknown]
  - Productive cough [Unknown]

NARRATIVE: CASE EVENT DATE: 2015
